FAERS Safety Report 13069077 (Version 1)
Quarter: 2016Q4

REPORT INFORMATION
  Report Type: Spontaneous
  Country: FR (occurrence: FR)
  Receive Date: 20161228
  Receipt Date: 20161228
  Transmission Date: 20170207
  Serious: Yes (Disabling, Other)
  Sender: FDA-Public Use
  Company Number: FR-EMCURE PHARMS-2016HTG00307

PATIENT
  Age: 56 Year
  Sex: Female

DRUGS (8)
  1. PRIMPERAN [Concomitant]
     Active Substance: METOCLOPRAMIDE HYDROCHLORIDE
  2. BICNU [Suspect]
     Active Substance: CARMUSTINE
     Indication: TRANSPLANT
     Dosage: 475 MG, 1 CYCLE
     Route: 042
     Dates: start: 20161109, end: 20161109
  3. ALKERAN [Suspect]
     Active Substance: MELPHALAN
     Indication: TRANSPLANT
     Dosage: 220 MG, 1 CYCLE
     Route: 042
     Dates: start: 20161114, end: 20161114
  4. CYTARABINE SANDOZ [Suspect]
     Active Substance: CYTARABINE
     Indication: TRANSPLANT
     Dosage: 315 MG, 1 CYCLE
     Route: 042
     Dates: start: 20161110, end: 20161113
  5. EMEND [Concomitant]
     Active Substance: APREPITANT
  6. POLARAMINE [Concomitant]
     Active Substance: DEXCHLORPHENIRAMINE MALEATE
  7. ETOPOSIDE TEVA [Suspect]
     Active Substance: ETOPOSIDE
     Indication: TRANSPLANT
     Dosage: 158 MG, 1 CYCLE
     Route: 042
     Dates: start: 20161110, end: 20161113
  8. LASILIX [Concomitant]
     Active Substance: FUROSEMIDE

REACTIONS (1)
  - Mucosal inflammation [Recovered/Resolved]

NARRATIVE: CASE EVENT DATE: 20161116
